FAERS Safety Report 9056173 (Version 1)
Quarter: 2013Q1

REPORT INFORMATION
  Report Type: Spontaneous
  Country: US (occurrence: US)
  Receive Date: 20130205
  Receipt Date: 20130205
  Transmission Date: 20140127
  Serious: No
  Sender: FDA-Public Use
  Company Number: US-BAYER-2013-004436

PATIENT
  Age: 31 Year
  Sex: Female

DRUGS (2)
  1. MIRENA [Suspect]
     Indication: DYSMENORRHOEA
     Dosage: 20 MCG/24HR, CONT
     Route: 015
     Dates: start: 20120706, end: 20130109
  2. MIRENA [Suspect]
     Indication: MENORRHAGIA

REACTIONS (6)
  - Emotional disorder [None]
  - Abdominal pain lower [None]
  - Muscle spasms [None]
  - Feeling abnormal [None]
  - Device expulsion [None]
  - Off label use [None]
